FAERS Safety Report 20326572 (Version 1)
Quarter: 2022Q1

REPORT INFORMATION
  Report Type: Report from Study
  Country: PK (occurrence: PK)
  Receive Date: 20220112
  Receipt Date: 20220112
  Transmission Date: 20220424
  Serious: Yes (Death)
  Sender: FDA-Public Use
  Company Number: PK-NOVARTISPH-NVSC2022PK005156

PATIENT
  Age: 61 Year
  Sex: Female
  Weight: 80 kg

DRUGS (1)
  1. KISQALI [Suspect]
     Active Substance: RIBOCICLIB
     Indication: Breast cancer metastatic
     Dosage: 600 MG, TID (3XOD)
     Route: 048
     Dates: start: 20210916, end: 20211015

REACTIONS (4)
  - Metastases to central nervous system [Fatal]
  - Renal impairment [Fatal]
  - Shock [Fatal]
  - Extra dose administered [Unknown]

NARRATIVE: CASE EVENT DATE: 20210916
